FAERS Safety Report 25445041 (Version 1)
Quarter: 2025Q2

REPORT INFORMATION
  Report Type: Spontaneous
  Country: DK (occurrence: DK)
  Receive Date: 20250617
  Receipt Date: 20250617
  Transmission Date: 20250716
  Serious: Yes (Death, Hospitalization, Other)
  Sender: RANBAXY
  Company Number: DK-SUN PHARMACEUTICAL INDUSTRIES LTD-2025R1-511709

PATIENT
  Sex: Male

DRUGS (1)
  1. FUROSEMIDE [Suspect]
     Active Substance: FUROSEMIDE
     Indication: Oliguria
     Route: 065

REACTIONS (4)
  - Condition aggravated [Fatal]
  - Drug ineffective [Unknown]
  - Hypoglycaemia [Unknown]
  - Lactic acidosis [Unknown]
